FAERS Safety Report 18952514 (Version 2)
Quarter: 2021Q1

REPORT INFORMATION
  Report Type: Spontaneous
  Country: US (occurrence: US)
  Receive Date: 20210301
  Receipt Date: 20210301
  Transmission Date: 20210420
  Serious: Yes (Hospitalization)
  Sender: FDA-Public Use
  Company Number: US-CELGENEUS-USA-20210206782

PATIENT
  Age: 64 Year
  Sex: Female

DRUGS (2)
  1. IDHIFA [Suspect]
     Active Substance: ENASIDENIB MESYLATE
     Indication: OFF LABEL USE
  2. IDHIFA [Suspect]
     Active Substance: ENASIDENIB MESYLATE
     Indication: NASAL SINUS CANCER
     Dosage: 100 MILLIGRAM
     Route: 048
     Dates: start: 202008, end: 202101

REACTIONS (2)
  - Platelet count decreased [Unknown]
  - Nasal sinus cancer [Unknown]

NARRATIVE: CASE EVENT DATE: 202101
